FAERS Safety Report 15166841 (Version 1)
Quarter: 2018Q3

REPORT INFORMATION
  Report Type: Spontaneous
  Country: BE (occurrence: BE)
  Receive Date: 20180719
  Receipt Date: 20180719
  Transmission Date: 20181010
  Serious: Yes (Hospitalization, Other)
  Sender: FDA-Public Use
  Company Number: BE-009507513-2005-11-0133

PATIENT
  Age: 37 Year
  Sex: Male

DRUGS (11)
  1. VINBLASTINE SULFATE. [Concomitant]
     Active Substance: VINBLASTINE SULFATE
     Dosage: DOSE: UNKNOWN DURATION: 6 CYCLE(S)
     Route: 065
  2. CISPLATIN. [Concomitant]
     Active Substance: CISPLATIN
     Dosage: DOSE: UNKNOWN DURATION: 6 CYCLE(S)
     Route: 065
  3. OMEPRAZOLE. [Concomitant]
     Active Substance: OMEPRAZOLE
     Dosage: DOSE: 20 MG
     Route: 065
  4. DIFLUCAN [Concomitant]
     Active Substance: FLUCONAZOLE
     Dosage: DOSE: 200 MG
     Route: 048
  5. EFEXOR [Concomitant]
     Active Substance: VENLAFAXINE HYDROCHLORIDE
     Dosage: DOSE: 75 MG
     Route: 065
  6. KEPPRA [Concomitant]
     Active Substance: LEVETIRACETAM
     Dosage: UNK, TID
     Route: 065
  7. RIVOTRIL [Concomitant]
     Active Substance: CLONAZEPAM
     Dosage: DOSE: 1 MG
     Route: 065
  8. PACLITAXEL. [Concomitant]
     Active Substance: PACLITAXEL
     Dosage: DOSE: UNKNOWN DURATION: 6 CYCLE(S)
     Route: 065
  9. TEMODAL [Suspect]
     Active Substance: TEMOZOLOMIDE
     Indication: GLIOBLASTOMA MULTIFORME
     Dosage: 200 MG/M2, UNK
     Route: 048
  10. MEDROL [Concomitant]
     Active Substance: METHYLPREDNISOLONE
     Dosage: DOSE: 32 MG
     Route: 048
  11. DOMINAL [Concomitant]
     Dosage: DOSE: 40 MG
     Route: 065

REACTIONS (9)
  - Cardiomegaly [Unknown]
  - Adenoiditis [Unknown]
  - Infection [Unknown]
  - Neutropenia [Unknown]
  - Vocal cord paralysis [Unknown]
  - Infection [Recovered/Resolved]
  - Pyrexia [Unknown]
  - Thrombocytopenia [Unknown]
  - Febrile neutropenia [Unknown]

NARRATIVE: CASE EVENT DATE: 20051027
